FAERS Safety Report 6925941-2 (Version None)
Quarter: 2010Q3

REPORT INFORMATION
  Report Type: 
  Country: None (occurrence: None)
  Receive Date: 20100813
  Receipt Date: 20100813
  Transmission Date: 20110219
  Serious: Yes (Hospitalization)
  Sender: FDA-Public Use
  Company Number: None

PATIENT
  Age: 52 Year
  Sex: Male

DRUGS (1)
  1. LISINOPRIL [Suspect]
     Dosage: 1/2 TAB EVERY DAY PO
     Route: 048
     Dates: start: 20091105, end: 20091123

REACTIONS (3)
  - ANGIOEDEMA [None]
  - BUTTERFLY RASH [None]
  - PARAESTHESIA [None]
